FAERS Safety Report 5892315-5 (Version None)
Quarter: 2008Q3

REPORT INFORMATION
  Report Type: 
  Country: None (occurrence: None)
  Receive Date: 20080922
  Receipt Date: 20080917
  Transmission Date: 20090109
  Serious: Yes (Other)
  Sender: FDA-Public Use
  Company Number: CA-JNJCH-2008024034

PATIENT
  Age: 63 Year
  Sex: Male

DRUGS (1)
  1. VISINE ADVANCE ALLERGY [Suspect]
     Indication: OCULAR HYPERAEMIA
     Dosage: TEXT:ONCE IN RIGHT EYE
     Route: 047
     Dates: start: 20080101, end: 20080101

REACTIONS (5)
  - BURNING SENSATION [None]
  - EYE DISORDER [None]
  - EYE SWELLING [None]
  - EYELID OEDEMA [None]
  - MYDRIASIS [None]
